FAERS Safety Report 4833168-3 (Version None)
Quarter: 2005Q4

REPORT INFORMATION
  Report Type: 
  Country: None (occurrence: None)
  Receive Date: 20051117
  Receipt Date: 20051104
  Transmission Date: 20060501
  Serious: Yes (Other)
  Sender: FDA-Public Use
  Company Number: 2005126761

PATIENT
  Sex: Male

DRUGS (7)
  1. BEXTRA [Suspect]
     Indication: PAIN IN EXTREMITY
     Dosage: 20 MG (20 MG, 1 IN 1 D), ORAL
     Route: 048
     Dates: start: 20030214, end: 20050401
  2. FELDENE [Suspect]
     Indication: ILL-DEFINED DISORDER
     Dosage: 20 MG (20 MG, 1 IN 1 D), ORAL
     Route: 048
  3. NEXIUM [Concomitant]
  4. VIAGRA [Concomitant]
  5. VITAMINS WITH MINERALS (VITAMINS WITH MINERALS) [Concomitant]
  6. VITAMIN C (VITAMIN C) [Concomitant]
  7. ASPIRIN [Concomitant]

REACTIONS (22)
  - ABDOMINAL DISCOMFORT [None]
  - BODY TEMPERATURE INCREASED [None]
  - BRONCHITIS [None]
  - BURSITIS [None]
  - CELLULITIS [None]
  - CHEST PAIN [None]
  - DERMATITIS [None]
  - DERMATITIS CONTACT [None]
  - ELECTROCARDIOGRAM ABNORMAL [None]
  - EXERCISE ELECTROCARDIOGRAM ABNORMAL [None]
  - FATIGUE [None]
  - HEADACHE [None]
  - HEART RATE INCREASED [None]
  - JOINT SWELLING [None]
  - MUSCLE SPASMS [None]
  - OEDEMA PERIPHERAL [None]
  - PALPITATIONS [None]
  - PULMONARY CONGESTION [None]
  - SEBORRHOEIC KERATOSIS [None]
  - SINUS CONGESTION [None]
  - SKIN ULCER [None]
  - VENTRICULAR EXTRASYSTOLES [None]
